FAERS Safety Report 5711553-5 (Version None)
Quarter: 2008Q2

REPORT INFORMATION
  Report Type: 
  Country: None (occurrence: None)
  Receive Date: 20080421
  Receipt Date: 20080411
  Transmission Date: 20081010
  Serious: Yes (Life-Threatening)
  Sender: FDA-Public Use
  Company Number: US-ABBOTT-08P-163-0446700-00

PATIENT
  Sex: Male
  Weight: 113.6 kg

DRUGS (4)
  1. NIASPAN [Suspect]
     Indication: BLOOD CHOLESTEROL
     Route: 048
     Dates: start: 20080331, end: 20080401
  2. INEGY [Concomitant]
     Indication: BLOOD CHOLESTEROL
     Route: 048
  3. FENOFIBRATE [Concomitant]
     Indication: BLOOD TRIGLYCERIDES
     Route: 048
  4. FENOFIBRATE [Concomitant]
     Indication: BLOOD CHOLESTEROL

REACTIONS (2)
  - ANAPHYLACTIC REACTION [None]
  - OBSTRUCTIVE AIRWAYS DISORDER [None]
